FAERS Safety Report 4997067-9 (Version None)
Quarter: 2006Q2

REPORT INFORMATION
  Report Type: 
  Country: None (occurrence: None)
  Receive Date: 20060505
  Receipt Date: 20060424
  Transmission Date: 20061013
  Serious: Yes (Other)
  Sender: FDA-Public Use
  Company Number: US017388

PATIENT
  Age: 60 Year
  Sex: Female

DRUGS (9)
  1. PROVIGIL [Suspect]
     Indication: BIPOLAR I DISORDER
     Dosage: 200 MG QD ORAL
     Route: 048
     Dates: start: 20060220, end: 20060309
  2. PROVIGIL [Suspect]
     Indication: FATIGUE
     Dosage: 200 MG QD ORAL
     Route: 048
     Dates: start: 20060220, end: 20060309
  3. PROVIGIL [Suspect]
     Indication: BIPOLAR I DISORDER
     Dosage: 200 MG BID ORAL
     Route: 048
     Dates: start: 20060310, end: 20060320
  4. PROVIGIL [Suspect]
     Indication: FATIGUE
     Dosage: 200 MG BID ORAL
     Route: 048
     Dates: start: 20060310, end: 20060320
  5. FOCALIN [Suspect]
     Dates: start: 20050301
  6. DEPAKOTE [Concomitant]
  7. EFFEXOR [Concomitant]
  8. RISPERDAL [Concomitant]
  9. WELLBUTRIN [Concomitant]

REACTIONS (1)
  - TARDIVE DYSKINESIA [None]
